FAERS Safety Report 7971383-0 (Version None)
Quarter: 2011Q4

REPORT INFORMATION
  Report Type: 
  Country: None (occurrence: None)
  Receive Date: 20111212
  Receipt Date: 20111201
  Transmission Date: 20120403
  Serious: Yes (Hospitalization, Disabling)
  Sender: FDA-Public Use
  Company Number: US-MERCK-1107USA03609

PATIENT
  Age: 52 Year
  Sex: Female
  Weight: 53 kg

DRUGS (5)
  1. FOSAMAX [Suspect]
     Indication: OSTEOPENIA
     Route: 048
     Dates: start: 19950101, end: 20100101
  2. NEUROTIN (ACETYLCARNITINE HYDROCHLORIDE) [Concomitant]
     Indication: CONVULSION
     Route: 065
     Dates: start: 19800101
  3. FOSAMAX [Suspect]
     Indication: OSTEOPOROSIS
     Route: 048
     Dates: start: 19950101, end: 20100101
  4. FOSAMAX [Suspect]
     Route: 048
     Dates: end: 20100101
  5. FOSAMAX [Suspect]
     Route: 048
     Dates: end: 20100101

REACTIONS (47)
  - COLONIC POLYP [None]
  - GASTROOESOPHAGEAL REFLUX DISEASE [None]
  - VIRAL INFECTION [None]
  - FISTULA DISCHARGE [None]
  - HERPES ZOSTER [None]
  - HYPERLIPIDAEMIA [None]
  - RENAL FAILURE CHRONIC [None]
  - TOOTH FRACTURE [None]
  - TOOTH DISORDER [None]
  - LOSS OF CONSCIOUSNESS [None]
  - FOOT DEFORMITY [None]
  - ANKLE FRACTURE [None]
  - VAGINAL HAEMORRHAGE [None]
  - BREAST MASS [None]
  - DENTAL CARIES [None]
  - POLYNEUROPATHY [None]
  - OSTEOMYELITIS [None]
  - ORAL DISORDER [None]
  - SEASONAL ALLERGY [None]
  - GINGIVAL BLEEDING [None]
  - IMPAIRED HEALING [None]
  - ARTHROPATHY [None]
  - CONTUSION [None]
  - DEMENTIA [None]
  - ORAL TORUS [None]
  - POLLAKIURIA [None]
  - RIB FRACTURE [None]
  - JOINT STIFFNESS [None]
  - HYPERTHYROIDISM [None]
  - OSTEONECROSIS OF JAW [None]
  - CEREBRAL DISORDER [None]
  - PAIN IN EXTREMITY [None]
  - GINGIVAL DISORDER [None]
  - IRRITABLE BOWEL SYNDROME [None]
  - ACCIDENT [None]
  - DIABETES MELLITUS INADEQUATE CONTROL [None]
  - DIZZINESS [None]
  - ORAL INFECTION [None]
  - HYPERTENSIVE NEPHROPATHY [None]
  - BONE LOSS [None]
  - PULPITIS DENTAL [None]
  - FALL [None]
  - CEREBRAL ARTERIOSCLEROSIS [None]
  - PERIODONTITIS [None]
  - WRIST FRACTURE [None]
  - POLYP [None]
  - HYPOGLYCAEMIA [None]
